FAERS Safety Report 6000340-9 (Version None)
Quarter: 2008Q4

REPORT INFORMATION
  Report Type: 
  Country: None (occurrence: None)
  Receive Date: 20081215
  Receipt Date: 20080731
  Transmission Date: 20090506
  Serious: No
  Sender: FDA-Public Use
  Company Number: US-BAYER-200814560BCC

PATIENT
  Age: 88 Year
  Sex: Female
  Weight: 64 kg

DRUGS (6)
  1. ALEVE [Suspect]
     Indication: DRUG USE FOR UNKNOWN INDICATION
     Dosage: TOTAL DAILY DOSE: 660 MG  UNIT DOSE: 220 MG
     Route: 048
     Dates: start: 20080731
  2. VITAMINS [Concomitant]
  3. EYE DROPS [Concomitant]
  4. GABAPENTIN [Concomitant]
  5. APAP W/BUTALBITAL [Concomitant]
  6. PREVACID [Concomitant]

REACTIONS (1)
  - NO ADVERSE EVENT [None]
